FAERS Safety Report 6124024-1 (Version None)
Quarter: 2009Q1

REPORT INFORMATION
  Report Type: 
  Country: None (occurrence: None)
  Receive Date: 20090319
  Receipt Date: 20090310
  Transmission Date: 20090719
  Serious: Yes (Other)
  Sender: FDA-Public Use
  Company Number: BE-CELGENEUS-013-21880-09030777

PATIENT
  Sex: Female
  Weight: 57 kg

DRUGS (5)
  1. REVLIMID [Suspect]
     Route: 048
     Dates: start: 20090212, end: 20090223
  2. DARBEPOETIN [Concomitant]
     Route: 065
     Dates: start: 20080701
  3. PERINDOPRIL ERBUMINE [Concomitant]
     Indication: HYPERTENSION
     Route: 065
     Dates: start: 20060101
  4. SINEQUAN [Concomitant]
     Indication: DEPRESSION
     Route: 065
     Dates: start: 20080501
  5. SOLTAN [Concomitant]
     Indication: DEPRESSION
     Route: 065
     Dates: start: 20080501

REACTIONS (1)
  - PRURITUS GENERALISED [None]
